FAERS Safety Report 14626381 (Version 1)
Quarter: 2018Q1

REPORT INFORMATION
  Report Type: Spontaneous
  Country: HK (occurrence: HK)
  Receive Date: 20180312
  Receipt Date: 20180312
  Transmission Date: 20180509
  Serious: Yes (Death, Other)
  Sender: FDA-Public Use
  Company Number: HK-B.I. PHARMACEUTICALS,INC./RIDGEFIELD-2018-BI-013488

PATIENT
  Age: 55 Year
  Sex: Female

DRUGS (2)
  1. GILOTRIF [Suspect]
     Active Substance: AFATINIB
     Indication: LYMPHANGIOSIS CARCINOMATOSA
  2. GILOTRIF [Suspect]
     Active Substance: AFATINIB
     Indication: LUNG CANCER METASTATIC
     Route: 065
     Dates: start: 201404, end: 201704

REACTIONS (11)
  - General physical health deterioration [Unknown]
  - Malignant neoplasm progression [Unknown]
  - Decreased appetite [Unknown]
  - Pyrexia [Unknown]
  - Lower respiratory tract infection [Fatal]
  - Chest pain [Unknown]
  - Lower respiratory tract infection [Unknown]
  - Weight decreased [Unknown]
  - Diarrhoea [Recovered/Resolved]
  - Hypoxia [Unknown]
  - Muscle disorder [Unknown]

NARRATIVE: CASE EVENT DATE: 201605
